FAERS Safety Report 4304414-X (Version None)
Quarter: 2004Q1

REPORT INFORMATION
  Report Type: 
  Country: None (occurrence: None)
  Receive Date: 20040224
  Receipt Date: 20040210
  Transmission Date: 20041129
  Serious: Yes (Death)
  Sender: FDA-Public Use
  Company Number: US-JNJFOC-20040102985

PATIENT
  Age: 50 Year
  Sex: Female

DRUGS (18)
  1. DURAGESIC [Suspect]
     Indication: PAIN
     Dosage: SEE IMAGE
     Route: 062
     Dates: end: 20040101
  2. DURAGESIC [Suspect]
     Indication: PAIN
     Dosage: SEE IMAGE
     Route: 062
     Dates: start: 20030201
  3. HYDROCODONE (HYDROCODONE) [Concomitant]
  4. PREVACID [Concomitant]
  5. NYSTATIN POWDER (NYSTATIN) [Concomitant]
  6. BACTRIM [Concomitant]
  7. AZATHIOPRINE (AZATHIOPRINE) TABLETS [Concomitant]
  8. NEURONTIN (GABAPENTIN) TABLETS [Concomitant]
  9. ALLEGRA [Concomitant]
  10. WELLBUTRIN [Concomitant]
  11. FOSAMAX [Concomitant]
  12. ASPIRIN [Concomitant]
  13. CALCIUM/VITAMIN D (CALCIUM WITH VITAMIN D) [Concomitant]
  14. MULTIVITAMIN (MULTIVITAMINS) TABLETS [Concomitant]
  15. AMITRIPTYLINE HCL [Concomitant]
  16. LISINOPRIL [Concomitant]
  17. VANCOMYCIN [Concomitant]
  18. ERTAPENEM (ALL OTHER THERAPEUTIC PRODUCTS) [Concomitant]

REACTIONS (4)
  - ADHESION [None]
  - FEELING ABNORMAL [None]
  - LUNG CONSOLIDATION [None]
  - LUNG CYST BENIGN [None]
